FAERS Safety Report 18028347 (Version 1)
Quarter: 2020Q3

REPORT INFORMATION
  Report Type: Spontaneous
  Country: FR (occurrence: FR)
  Receive Date: 20200716
  Receipt Date: 20200716
  Transmission Date: 20201103
  Serious: Yes (Hospitalization)
  Sender: FDA-Public Use
  Company Number: FR-TEVA-2020-FR-1800207

PATIENT
  Age: 55 Year
  Sex: Male
  Weight: 70 kg

DRUGS (3)
  1. ESOMEPRAZOLE. [Concomitant]
     Active Substance: ESOMEPRAZOLE MAGNESIUM
     Indication: GASTROOESOPHAGEAL REFLUX DISEASE
     Dosage: UNIT DOSE: 40 MG
     Route: 048
  2. KETOPROFENE [Suspect]
     Active Substance: KETOPROFEN
     Indication: ROTATOR CUFF SYNDROME
     Dosage: 100 MG, UNIT DOSE: 100 MG
     Route: 048
     Dates: start: 20200618, end: 20200618
  3. FLECTOR [Suspect]
     Active Substance: DICLOFENAC EPOLAMINE
     Indication: ROTATOR CUFF SYNDROME
     Dosage: UNSPECIFIED
     Route: 062
     Dates: start: 20200618, end: 20200618

REACTIONS (4)
  - Urticaria [Recovered/Resolved]
  - Paraesthesia [Recovered/Resolved]
  - Dyspnoea [Recovered/Resolved]
  - Angioedema [Recovered/Resolved]

NARRATIVE: CASE EVENT DATE: 20200619
